FAERS Safety Report 7469829-X (Version None)
Quarter: 2011Q2

REPORT INFORMATION
  Report Type: 
  Country: None (occurrence: None)
  Receive Date: 20110510
  Receipt Date: 20100802
  Transmission Date: 20111010
  Serious: Yes (Hospitalization, Other)
  Sender: FDA-Public Use
  Company Number: CH-ROCHE-718462

PATIENT

DRUGS (8)
  1. MYCOPHENOLATE MOFETIL [Suspect]
     Dosage: DOSE REDUCED.
     Route: 065
  2. PREDNISOLONE [Suspect]
     Dosage: DOSE REDUCED.
     Route: 065
  3. PREDNISOLONE [Suspect]
     Indication: IMMUNOSUPPRESSION
     Route: 065
  4. AZATHIOPRINE [Suspect]
     Dosage: DOSE REDUCED.
     Route: 065
  5. TACROLIMUS [Suspect]
     Indication: IMMUNOSUPPRESSION
     Route: 065
  6. CYCLOSPORINE [Suspect]
     Indication: IMMUNOSUPPRESSION
     Route: 065
  7. MYCOPHENOLATE MOFETIL [Suspect]
     Indication: IMMUNOSUPPRESSION
     Route: 065
  8. AZATHIOPRINE [Suspect]
     Indication: IMMUNOSUPPRESSION
     Route: 065

REACTIONS (6)
  - VIRAL MUTATION IDENTIFIED [None]
  - DEHYDRATION [None]
  - GASTROINTESTINAL DISORDER [None]
  - GRAFT DYSFUNCTION [None]
  - GASTROENTERITIS NOROVIRUS [None]
  - RENAL IMPAIRMENT [None]
